FAERS Safety Report 18397212 (Version 1)
Quarter: 2020Q4

REPORT INFORMATION
  Report Type: Spontaneous
  Country: US (occurrence: US)
  Receive Date: 20201016
  Receipt Date: 20201016
  Transmission Date: 20210114
  Serious: Yes (Other)
  Sender: FDA-Public Use
  Company Number: None

PATIENT

DRUGS (1)
  1. DULOXETINE. [Suspect]
     Active Substance: DULOXETINE
     Indication: NEURALGIA
     Route: 048

REACTIONS (9)
  - Anger [None]
  - Suicidal ideation [None]
  - Mania [None]
  - Anxiety [None]
  - Tremor [None]
  - Pain [None]
  - Liver function test decreased [None]
  - Feeling abnormal [None]
  - Adjustment disorder with depressed mood [None]

NARRATIVE: CASE EVENT DATE: 20201013
